FAERS Safety Report 20576431 (Version 4)
Quarter: 2022Q3

REPORT INFORMATION
  Report Type: Report from Study
  Country: US (occurrence: US)
  Receive Date: 20220310
  Receipt Date: 20220823
  Transmission Date: 20221026
  Serious: Yes (Hospitalization, Other)
  Sender: FDA-Public Use
  Company Number: NVSC2022US055640

PATIENT
  Sex: Female

DRUGS (1)
  1. ENTRESTO [Suspect]
     Active Substance: SACUBITRIL\VALSARTAN
     Indication: Product used for unknown indication
     Dosage: 1 DOSAGE FORM, BID (49/51 MG)
     Route: 048
     Dates: start: 202107

REACTIONS (9)
  - Fluid retention [Unknown]
  - Atypical pneumonia [Unknown]
  - Herpes zoster [Unknown]
  - Amnesia [Unknown]
  - Dyspnoea [Recovering/Resolving]
  - Aphonia [Unknown]
  - Muscle fatigue [Unknown]
  - Cough [Recovering/Resolving]
  - Product dose omission issue [Unknown]
